FAERS Safety Report 7114611-6 (Version None)
Quarter: 2010Q4

REPORT INFORMATION
  Report Type: 
  Country: None (occurrence: None)
  Receive Date: 20101121
  Receipt Date: 20101108
  Transmission Date: 20110411
  Serious: No
  Sender: FDA-Public Use
  Company Number: CA-ELI_LILLY_AND_COMPANY-CA201011001959

PATIENT
  Sex: Male

DRUGS (12)
  1. ZYPREXA [Suspect]
     Dosage: 10 MG, 2/D
     Route: 048
     Dates: start: 20071228, end: 20100412
  2. ZYPREXA [Suspect]
     Dosage: 5 MG, DAILY (1/D)
     Route: 048
     Dates: start: 20100412
  3. ZYPREXA ZYDIS [Suspect]
     Dosage: 5 MG, DAILY (1/D)
     Route: 048
     Dates: start: 20060630, end: 20071208
  4. CLOZAPINE [Concomitant]
     Dosage: 600 MG, DAILY (1/D)
  5. PARNATE [Concomitant]
     Dosage: 20 MG, EACH MORNING
  6. PARNATE [Concomitant]
     Dosage: 10 MG, DAILY (1/D)
  7. SEROQUEL [Concomitant]
     Dosage: 200 MG, EACH EVENING
  8. SEROQUEL [Concomitant]
     Dosage: 400 MG, EACH EVENING
  9. LORAZEPAM [Concomitant]
     Dosage: 2 MG, EACH EVENING
  10. FERROUS GLUCONATE [Concomitant]
     Dosage: 300 MG, 2/D
  11. SURFAK [Concomitant]
     Dosage: 240 MG, 2/D
  12. NOZINAN [Concomitant]

REACTIONS (4)
  - DIABETES MELLITUS [None]
  - GASTROINTESTINAL ULCER [None]
  - HAEMOGLOBIN DECREASED [None]
  - OCCULT BLOOD POSITIVE [None]
